FAERS Safety Report 13110462 (Version 1)
Quarter: 2017Q1

REPORT INFORMATION
  Report Type: Spontaneous
  Country: US (occurrence: US)
  Receive Date: 20170112
  Receipt Date: 20170112
  Transmission Date: 20170428
  Serious: Yes (Death, Hospitalization, Other)
  Sender: FDA-Public Use
  Company Number: US-ROCHE-1100490

PATIENT
  Age: 56 Year
  Sex: Male

DRUGS (10)
  1. ACTIVASE [Suspect]
     Active Substance: ALTEPLASE
     Indication: ACUTE MYOCARDIAL INFARCTION
     Route: 065
  2. DOPAMINE [Concomitant]
     Active Substance: DOPAMINE\DOPAMINE HYDROCHLORIDE
     Dosage: 15 MG/KG
     Route: 040
  3. MAGNESIUM SULPHATE [Concomitant]
     Active Substance: MAGNESIUM SULFATE
     Route: 065
  4. PEPCID [Concomitant]
     Active Substance: FAMOTIDINE
     Route: 065
  5. LIDOCAINE. [Concomitant]
     Active Substance: LIDOCAINE
     Route: 040
  6. EPINEPHRINE. [Concomitant]
     Active Substance: EPINEPHRINE
     Route: 065
  7. HUMULIN NOS [Concomitant]
     Active Substance: INSULIN HUMAN
  8. ATROPINE. [Concomitant]
     Active Substance: ATROPINE
     Route: 065
  9. LIDOCAINE. [Concomitant]
     Active Substance: LIDOCAINE
     Route: 041
  10. HEPARIN [Concomitant]
     Active Substance: HEPARIN SODIUM
     Dosage: 10000 U
     Route: 065

REACTIONS (4)
  - Ventricular tachycardia [Unknown]
  - Cardiogenic shock [Unknown]
  - Pulmonary oedema [Unknown]
  - Cardio-respiratory arrest [Fatal]

NARRATIVE: CASE EVENT DATE: 19930919
